FAERS Safety Report 25885726 (Version 1)
Quarter: 2025Q4

REPORT INFORMATION
  Report Type: Spontaneous
  Country: EU (occurrence: EU)
  Receive Date: 20251006
  Receipt Date: 20251006
  Transmission Date: 20260117
  Serious: Yes (Death, Other)
  Sender: PFIZER
  Company Number: None

PATIENT
  Age: 81 Year
  Sex: Male

DRUGS (1)
  1. ADCETRIS [Suspect]
     Active Substance: BRENTUXIMAB VEDOTIN
     Indication: T-cell lymphoma refractory
     Dosage: 171 MILLIGRAM, Q3WEEKS
     Route: 042
     Dates: start: 20250311, end: 20250423

REACTIONS (3)
  - Bronchitis moraxella [Fatal]
  - Heart failure with preserved ejection fraction [Fatal]
  - Peripheral sensorimotor neuropathy [Recovering/Resolving]

NARRATIVE: CASE EVENT DATE: 20250422
